FAERS Safety Report 5310960-2 (Version None)
Quarter: 2007Q2

REPORT INFORMATION
  Report Type: 
  Country: None (occurrence: None)
  Receive Date: 20070430
  Receipt Date: 20070419
  Transmission Date: 20071010
  Serious: Yes (Other)
  Sender: FDA-Public Use
  Company Number: BR-JNJFOC-20070404805

PATIENT
  Age: 57 Year
  Sex: Male
  Weight: 88 kg

DRUGS (5)
  1. ACETAMINOPHEN W/ CODEINE [Suspect]
     Indication: CHEST PAIN
     Route: 048
  2. SPIROCTAN [Concomitant]
     Route: 048
  3. DILTIAZEM [Concomitant]
     Route: 048
  4. SIMVASTATIN [Concomitant]
     Route: 048
  5. ASPIRIN [Concomitant]
     Route: 048

REACTIONS (3)
  - CHEST PAIN [None]
  - DRUG INEFFECTIVE FOR UNAPPROVED INDICATION [None]
  - HYPERSENSITIVITY [None]
